FAERS Safety Report 8382094-4 (Version None)
Quarter: 2012Q2

REPORT INFORMATION
  Report Type: 
  Country: None (occurrence: None)
  Receive Date: 20120511
  Receipt Date: 20120507
  Transmission Date: 20120825
  Serious: Yes (Other)
  Sender: FDA-Public Use
  Company Number: 2012032264

PATIENT
  Sex: Female

DRUGS (2)
  1. CARIMUNE [Suspect]
     Indication: IMMUNODEFICIENCY COMMON VARIABLE
     Dosage: IV
     Route: 042
  2. PRIVIGEN [Suspect]
     Indication: IMMUNODEFICIENCY COMMON VARIABLE
     Dosage: (INTRAVENOUS (NOT OTHERWISE SPECIFIED))
     Route: 042

REACTIONS (7)
  - INFUSION SITE URTICARIA [None]
  - HEADACHE [None]
  - MIGRAINE [None]
  - FATIGUE [None]
  - CLOSTRIDIAL INFECTION [None]
  - INFUSION SITE ERYTHEMA [None]
  - FEELING ABNORMAL [None]
